FAERS Safety Report 6770833-5 (Version None)
Quarter: 2010Q2

REPORT INFORMATION
  Report Type: 
  Country: None (occurrence: None)
  Receive Date: 20100614
  Receipt Date: 20100614
  Transmission Date: 20101027
  Serious: Yes (Other)
  Sender: FDA-Public Use
  Company Number: None

PATIENT
  Age: 17 Year
  Sex: Female
  Weight: 52.3 kg

DRUGS (1)
  1. ACYCLOVIR [Suspect]
     Indication: ORAL HERPES
     Dosage: 400 MG ACYCLOVIR 1 DAILY 1 TAB BY MOUTH DAILY FOR SUPPRESSION OR, 400 MG ACYCLOVIR 3X DAILY FOR 5 D
     Route: 048
     Dates: start: 20090301, end: 20091201

REACTIONS (3)
  - GENITAL DISORDER FEMALE [None]
  - MENSTRUATION IRREGULAR [None]
  - SKIN CHAPPED [None]
